FAERS Safety Report 13236771 (Version 3)
Quarter: 2017Q3

REPORT INFORMATION
  Report Type: Report from Study
  Country: BR (occurrence: BR)
  Receive Date: 20170215
  Receipt Date: 20170707
  Transmission Date: 20171127
  Serious: Yes (Hospitalization)
  Sender: FDA-Public Use
  Company Number: BR-BIOGEN-2017BI00357459

PATIENT
  Age: 23 Year
  Sex: Female

DRUGS (1)
  1. AVONEX [Suspect]
     Active Substance: INTERFERON BETA-1A
     Indication: MULTIPLE SCLEROSIS
     Route: 030
     Dates: start: 2014, end: 2017

REACTIONS (9)
  - Multiple sclerosis relapse [Recovered/Resolved]
  - Speech disorder [Not Recovered/Not Resolved]
  - Drug effect decreased [Unknown]
  - Muscular weakness [Unknown]
  - Hypoaesthesia [Unknown]
  - Motor dysfunction [Not Recovered/Not Resolved]
  - Asthenia [Unknown]
  - Blindness transient [Recovered/Resolved]
  - Musculoskeletal disorder [Not Recovered/Not Resolved]

NARRATIVE: CASE EVENT DATE: 201702
